FAERS Safety Report 8501811-3 (Version None)
Quarter: 2012Q3

REPORT INFORMATION
  Report Type: 
  Country: None (occurrence: None)
  Receive Date: 20120705
  Receipt Date: 20120705
  Transmission Date: 20120928
  Serious: Yes (Hospitalization)
  Sender: FDA-Public Use
  Company Number: None

PATIENT
  Age: 48 Year
  Sex: Male
  Weight: 97.6 kg

DRUGS (2)
  1. PREDNISONE [Suspect]
     Indication: GOUT
     Dosage: MG EVERY DAY PO ; 75
     Route: 048
     Dates: start: 20110816, end: 20110826
  2. PREDNISONE [Suspect]
     Indication: GOUT
     Dosage: MG EVERY DAY PO ; 75
     Route: 048
     Dates: start: 20110610, end: 20110823

REACTIONS (2)
  - ANAEMIA [None]
  - GASTRIC HAEMORRHAGE [None]
